FAERS Safety Report 24665196 (Version 1)
Quarter: 2024Q4

REPORT INFORMATION
  Report Type: Spontaneous
  Country: CN (occurrence: CN)
  Receive Date: 20241126
  Receipt Date: 20241126
  Transmission Date: 20250115
  Serious: Yes (Hospitalization)
  Sender: MERCK
  Company Number: CN-009507513-2411CHN009422

PATIENT
  Age: 66 Year
  Sex: Male

DRUGS (3)
  1. KEYTRUDA [Suspect]
     Active Substance: PEMBROLIZUMAB
     Indication: Squamous cell carcinoma of head and neck
     Dosage: FIRST COURSE
     Dates: start: 20241024
  2. PEMETREXED [Suspect]
     Active Substance: PEMETREXED
     Indication: Squamous cell carcinoma of head and neck
     Dosage: FIRST COURSE
     Dates: start: 20241024
  3. CISPLATIN [Suspect]
     Active Substance: CISPLATIN
     Indication: Squamous cell carcinoma of head and neck
     Dosage: FIRST COURSE
     Dates: start: 20241024

REACTIONS (8)
  - White blood cell count decreased [Recovering/Resolving]
  - Nausea [Recovering/Resolving]
  - Vomiting [Recovering/Resolving]
  - Rash [Recovering/Resolving]
  - Diarrhoea [Recovering/Resolving]
  - Full blood count decreased [Recovering/Resolving]
  - Pyrexia [Recovering/Resolving]
  - Platelet count decreased [Recovering/Resolving]

NARRATIVE: CASE EVENT DATE: 20241031
